FAERS Safety Report 21385353 (Version 1)
Quarter: 2022Q3

REPORT INFORMATION
  Report Type: Report from Study
  Country: US (occurrence: US)
  Receive Date: 20220928
  Receipt Date: 20220928
  Transmission Date: 20221026
  Serious: Yes (Other)
  Sender: FDA-Public Use
  Company Number: US-ABBVIE-4130412

PATIENT
  Sex: Female

DRUGS (1)
  1. HUMIRA [Suspect]
     Active Substance: ADALIMUMAB
     Indication: Crohn^s disease
     Route: 058

REACTIONS (8)
  - Gastrointestinal fistula [Recovering/Resolving]
  - Pain in extremity [Unknown]
  - Intervertebral disc injury [Recovering/Resolving]
  - Nerve injury [Recovering/Resolving]
  - Road traffic accident [Recovering/Resolving]
  - Anosmia [Unknown]
  - Ageusia [Unknown]
  - Immunodeficiency [Unknown]

NARRATIVE: CASE EVENT DATE: 20200101
